FAERS Safety Report 18761760 (Version 1)
Quarter: 2021Q1

REPORT INFORMATION
  Report Type: Spontaneous
  Country: US (occurrence: US)
  Receive Date: 20210119
  Receipt Date: 20210119
  Transmission Date: 20210419
  Serious: Yes (Life-Threatening, Other)
  Sender: FDA-Public Use
  Company Number: None

PATIENT
  Age: 41 Year
  Sex: Female
  Weight: 63.9 kg

DRUGS (5)
  1. EPIPEN [Concomitant]
     Active Substance: EPINEPHRINE
  2. VITAMIN C [Concomitant]
     Active Substance: ASCORBIC ACID
  3. LISINOPRIL/HCTZ 20?12 .5MG [Suspect]
     Active Substance: HYDROCHLOROTHIAZIDE\LISINOPRIL
     Indication: HYPERTENSION
     Route: 048
     Dates: start: 20190122, end: 20191115
  4. MULTIVITAMIN [Concomitant]
     Active Substance: VITAMINS
  5. HYDROXYZINE [Concomitant]
     Active Substance: HYDROXYZINE HYDROCHLORIDE

REACTIONS (2)
  - Swollen tongue [None]
  - Lip swelling [None]

NARRATIVE: CASE EVENT DATE: 20191115
